FAERS Safety Report 14733254 (Version 1)
Quarter: 2018Q1

REPORT INFORMATION
  Report Type: Spontaneous
  Country: US (occurrence: US)
  Receive Date: 20180116
  Receipt Date: 20180116
  Transmission Date: 20180509
  Serious: Yes (Life-Threatening, Hospitalization)
  Sender: FDA-Public Use
  Company Number: None

PATIENT
  Age: 71 Year
  Sex: Male

DRUGS (1)
  1. VANCOMYCIN [Suspect]
     Active Substance: VANCOMYCIN
     Indication: PYREXIA
     Dates: start: 20171114, end: 20171114

REACTIONS (1)
  - Anaphylactic reaction [None]

NARRATIVE: CASE EVENT DATE: 20171114
